FAERS Safety Report 19389881 (Version 1)
Quarter: 2021Q2

REPORT INFORMATION
  Report Type: Spontaneous
  Country: FR (occurrence: FR)
  Receive Date: 20210608
  Receipt Date: 20210608
  Transmission Date: 20210717
  Serious: Yes (Hospitalization)
  Sender: FDA-Public Use
  Company Number: FR-ORGANON-O2106FRA000606

PATIENT
  Age: 33 Year
  Sex: Female
  Weight: 107 kg

DRUGS (1)
  1. NEXPLANON [Suspect]
     Active Substance: ETONOGESTREL
     Indication: CONTRACEPTION
     Dosage: 1 DOSAGE FORM, ONCE (1 TOTAL)
     Route: 059
     Dates: start: 20201001

REACTIONS (1)
  - Ovarian vein thrombosis [Recovering/Resolving]

NARRATIVE: CASE EVENT DATE: 20210319
